FAERS Safety Report 16238689 (Version 1)
Quarter: 2019Q2

REPORT INFORMATION
  Report Type: Spontaneous
  Country: CN (occurrence: CN)
  Receive Date: 20190425
  Receipt Date: 20190425
  Transmission Date: 20190711
  Serious: Yes (Other)
  Sender: FDA-Public Use
  Company Number: CN-PFIZER INC-2019173944

PATIENT
  Age: 69 Year
  Sex: Male

DRUGS (7)
  1. CALCIUM GLUCONATE. [Concomitant]
     Active Substance: CALCIUM GLUCONATE
     Indication: THERAPEUTIC PROCEDURE
     Dosage: UNK
     Dates: start: 20190408, end: 20190415
  2. LEVOCETIRIZINE HYDROCHLORIDE [Suspect]
     Active Substance: LEVOCETIRIZINE HYDROCHLORIDE
     Indication: HYPERSENSITIVITY
     Dosage: UNK UNK, 1X/DAY
     Route: 048
     Dates: start: 20190411
  3. CALCIUM GLUCONATE. [Concomitant]
     Active Substance: CALCIUM GLUCONATE
     Indication: RASH
  4. METHYLPREDNISOLONE SODIUM SUCCINATE. [Suspect]
     Active Substance: METHYLPREDNISOLONE SODIUM SUCCINATE
     Indication: RASH
  5. COMPOUND CALAMINE CAMPHOR [Concomitant]
     Dosage: UNK
     Dates: start: 20190411, end: 20190413
  6. METHYLPREDNISOLONE SODIUM SUCCINATE. [Suspect]
     Active Substance: METHYLPREDNISOLONE SODIUM SUCCINATE
     Indication: THERAPEUTIC PROCEDURE
     Dosage: UNK
     Dates: start: 20190408, end: 20190415
  7. DESLORATADINE. [Concomitant]
     Active Substance: DESLORATADINE
     Indication: HYPERSENSITIVITY
     Dosage: 1 DF, 1X/DAY
     Route: 048
     Dates: start: 20190411

REACTIONS (1)
  - Coma [Unknown]

NARRATIVE: CASE EVENT DATE: 20190416
